FAERS Safety Report 4814878-0 (Version None)
Quarter: 2005Q4

REPORT INFORMATION
  Report Type: 
  Country: None (occurrence: None)
  Receive Date: 20051028
  Receipt Date: 20050908
  Transmission Date: 20060501
  Serious: Yes (Other)
  Sender: FDA-Public Use
  Company Number: US-ROCHE-417723

PATIENT
  Age: 62 Year
  Sex: Female
  Weight: 72.6 kg

DRUGS (1)
  1. BONIVA [Suspect]
     Indication: OSTEOPOROSIS
     Dosage: STRENGTH REPORTED AS '150'
     Route: 048
     Dates: start: 20050817

REACTIONS (4)
  - ARTHRALGIA [None]
  - BACK PAIN [None]
  - BONE PAIN [None]
  - OEDEMA PERIPHERAL [None]
